FAERS Safety Report 21264815 (Version 1)
Quarter: 2022Q3

REPORT INFORMATION
  Report Type: Spontaneous
  Country: US (occurrence: None)
  Receive Date: 20220828
  Receipt Date: 20220828
  Transmission Date: 20221027
  Serious: Yes (Hospitalization)
  Sender: FDA-Public Use
  Company Number: None

PATIENT
  Sex: Female

DRUGS (3)
  1. PIQRAY [Suspect]
     Active Substance: ALPELISIB
     Indication: Vascular malformation
     Route: 048
     Dates: start: 20220719
  2. CELEBRIX CAP [Concomitant]
  3. XARELTO TAB [Concomitant]

REACTIONS (1)
  - Headache [None]
